FAERS Safety Report 22811779 (Version 2)
Quarter: 2024Q1

REPORT INFORMATION
  Report Type: Report from Study
  Country: IL (occurrence: IL)
  Receive Date: 20230810
  Receipt Date: 20240201
  Transmission Date: 20240409
  Serious: Yes (Hospitalization, Other)
  Sender: FDA-Public Use
  Company Number: IL-ABBVIE-5355887

PATIENT
  Sex: Male

DRUGS (2)
  1. SKYRIZI [Suspect]
     Active Substance: RISANKIZUMAB-RZAA
     Indication: Psoriatic arthropathy
     Dosage: FORM STRENGTH: 150 MILLIGRAM
     Route: 058
     Dates: start: 202304
  2. SKYRIZI [Suspect]
     Active Substance: RISANKIZUMAB-RZAA
     Dosage: FORM STRENGTH: 150 MILLIGRAM
     Route: 058
     Dates: start: 20230501, end: 20231224

REACTIONS (12)
  - Pyrexia [Recovered/Resolved]
  - Pneumonia [Recovered/Resolved]
  - Psoriatic arthropathy [Unknown]
  - Device issue [Unknown]
  - Unevaluable event [Unknown]
  - Pain in extremity [Not Recovered/Not Resolved]
  - Fear of death [Unknown]
  - Pain [Recovered/Resolved]
  - Gait disturbance [Unknown]
  - Lung disorder [Unknown]
  - Mobility decreased [Unknown]
  - Dysstasia [Not Recovered/Not Resolved]

NARRATIVE: CASE EVENT DATE: 20230101
